FAERS Safety Report 23239737 (Version 2)
Quarter: 2023Q4

REPORT INFORMATION
  Report Type: Other
  Country: KR (occurrence: None)
  Receive Date: 20231129
  Receipt Date: 20231218
  Transmission Date: 20240110
  Serious: Yes (Hospitalization)
  Sender: FDA-Public Use
  Company Number: KR-ROCHE-3464053

PATIENT
  Age: 45 Year
  Sex: Male

DRUGS (3)
  1. MYCOPHENOLATE MOFETIL [Suspect]
     Active Substance: MYCOPHENOLATE MOFETIL
     Indication: Prophylaxis against transplant rejection
     Route: 065
  2. DEFLAZACORT [Suspect]
     Active Substance: DEFLAZACORT
     Indication: Prophylaxis against transplant rejection
     Route: 065
  3. TACROLIMUS [Suspect]
     Active Substance: TACROLIMUS
     Indication: Prophylaxis against transplant rejection
     Route: 065

REACTIONS (2)
  - Infection [Unknown]
  - Glomerulonephritis [Unknown]
